FAERS Safety Report 12446323 (Version 1)
Quarter: 2016Q2

REPORT INFORMATION
  Report Type: Report from Study
  Country: FR (occurrence: FR)
  Receive Date: 20160608
  Receipt Date: 20160608
  Transmission Date: 20160815
  Serious: Yes (Death, Hospitalization, Other)
  Sender: FDA-Public Use
  Company Number: FR-ROCHE-1769445

PATIENT
  Sex: Female

DRUGS (5)
  1. RITUXIMAB [Suspect]
     Active Substance: RITUXIMAB
     Route: 042
     Dates: start: 20091015
  2. CORTANCYL [Concomitant]
     Active Substance: PREDNISONE
     Route: 065
  3. RITUXIMAB [Suspect]
     Active Substance: RITUXIMAB
     Route: 042
     Dates: start: 20090106
  4. RITUXIMAB [Suspect]
     Active Substance: RITUXIMAB
     Indication: RHEUMATOID ARTHRITIS
     Route: 042
     Dates: start: 20081219
  5. RITUXIMAB [Suspect]
     Active Substance: RITUXIMAB
     Route: 042
     Dates: start: 20091029

REACTIONS (5)
  - Fall [Unknown]
  - Ankle fracture [Recovered/Resolved]
  - Ill-defined disorder [Not Recovered/Not Resolved]
  - Death [Fatal]
  - Dizziness [Recovered/Resolved]

NARRATIVE: CASE EVENT DATE: 200902
